FAERS Safety Report 23996381 (Version 2)
Quarter: 2024Q2

REPORT INFORMATION
  Report Type: Spontaneous
  Country: US (occurrence: US)
  Receive Date: 20240620
  Receipt Date: 20240621
  Transmission Date: 20240716
  Serious: No
  Sender: FDA-Public Use
  Company Number: US-002147023-NVSC2024US127978

PATIENT
  Age: 21 Year
  Sex: Female

DRUGS (1)
  1. COSENTYX [Suspect]
     Active Substance: SECUKINUMAB
     Indication: Product used for unknown indication
     Dosage: 300 MG, QMO ((300MG/2ML)
     Route: 065
     Dates: start: 202403

REACTIONS (3)
  - Incorrect dose administered by device [Unknown]
  - Needle issue [Unknown]
  - Product leakage [Unknown]

NARRATIVE: CASE EVENT DATE: 20240616
